FAERS Safety Report 4302770-X (Version None)
Quarter: 2004Q1

REPORT INFORMATION
  Report Type: 
  Country: None (occurrence: None)
  Receive Date: 20040224
  Receipt Date: 20031020
  Transmission Date: 20041129
  Serious: No
  Sender: FDA-Public Use
  Company Number: US-BRISTOL-MYERS SQUIBB COMPANY-12414801

PATIENT
  Age: 56 Year
  Sex: Female
  Weight: 75 kg

DRUGS (2)
  1. KENALOG [Suspect]
     Indication: INTERVERTEBRAL DISC DISORDER
     Route: 051
     Dates: start: 20031016
  2. LIDOCAINE [Suspect]
     Indication: LOCAL ANAESTHESIA
     Route: 051
     Dates: start: 20031016

REACTIONS (5)
  - CHILLS [None]
  - DIZZINESS [None]
  - HYPERHIDROSIS [None]
  - INSOMNIA [None]
  - PYREXIA [None]
